FAERS Safety Report 14778022 (Version 1)
Quarter: 2018Q2

REPORT INFORMATION
  Report Type: Spontaneous
  Country: FR (occurrence: FR)
  Receive Date: 20180419
  Receipt Date: 20180419
  Transmission Date: 20180711
  Serious: Yes (Other)
  Sender: FDA-Public Use
  Company Number: FR-MERCK KGAA-2046047

PATIENT
  Age: 65 Year
  Sex: Female

DRUGS (1)
  1. NOVOTHYROX [Suspect]
     Active Substance: LEVOTHYROXINE SODIUM
     Dates: end: 20170915

REACTIONS (17)
  - Nervousness [None]
  - Aphasia [None]
  - Memory impairment [None]
  - Bradycardia [None]
  - Gait disturbance [None]
  - Asthenia [None]
  - Tachycardia [None]
  - Fatigue [None]
  - Intellectual disability [None]
  - Housebound [None]
  - Phobia of driving [None]
  - Personal relationship issue [None]
  - Loss of personal independence in daily activities [None]
  - Irritability [None]
  - Dyspnoea [None]
  - Alopecia [None]
  - Insomnia [None]

NARRATIVE: CASE EVENT DATE: 20170704
